FAERS Safety Report 5779570-7 (Version None)
Quarter: 2008Q2

REPORT INFORMATION
  Report Type: 
  Country: None (occurrence: None)
  Receive Date: 20080619
  Receipt Date: 20080611
  Transmission Date: 20081010
  Serious: Yes (Life-Threatening)
  Sender: FDA-Public Use
  Company Number: JP-PFIZER INC-2008021088

PATIENT
  Sex: Female

DRUGS (8)
  1. CELECOX [Suspect]
     Indication: OSTEOARTHRITIS
     Route: 048
     Dates: start: 20071001, end: 20080205
  2. TICLOPIDINE HCL [Suspect]
     Indication: CEREBRAL INFARCTION
     Route: 048
  3. MARZULENE [Concomitant]
     Route: 048
  4. OMNICAIN [Concomitant]
     Indication: OSTEOARTHRITIS
  5. BETAMETHASONE [Concomitant]
     Indication: OSTEOARTHRITIS
     Dosage: DAILY DOSE:2.5MG
     Dates: start: 20071016
  6. NORVASC [Concomitant]
     Indication: HYPERTENSION
     Dosage: DAILY DOSE:2.5MG
     Dates: end: 20080205
  7. CYANOCOBALAMIN [Concomitant]
     Indication: HYPOAESTHESIA
     Route: 048
  8. SERMION [Concomitant]
     Indication: CEREBRAL INFARCTION
     Route: 048
     Dates: end: 20080205

REACTIONS (3)
  - ANAEMIA [None]
  - GASTROINTESTINAL HAEMORRHAGE [None]
  - GASTROINTESTINAL STROMAL TUMOUR [None]
